FAERS Safety Report 25989454 (Version 1)
Quarter: 2025Q4

REPORT INFORMATION
  Report Type: Spontaneous
  Country: IR (occurrence: IR)
  Receive Date: 20251103
  Receipt Date: 20251103
  Transmission Date: 20260118
  Serious: Yes (Death, Hospitalization, Other)
  Sender: LEGACY PHARMACEUTICAL PACKAGING
  Company Number: IR-LEGACY PHARMA INC. SEZC-LGP202510-000311

PATIENT
  Age: 37 Year
  Sex: Female

DRUGS (8)
  1. AZATHIOPRINE [Suspect]
     Active Substance: AZATHIOPRINE
     Indication: Renal transplant
     Dosage: 1.5 MILLIGRAM/KILOGRAM, DAILY
     Route: 065
  2. THYMOGLOBULIN [Concomitant]
     Active Substance: LAPINE T-LYMPHOCYTE IMMUNE GLOBULIN
     Indication: Renal transplant
     Dosage: 1.5 MILLIGRAM/KILOGRAM, DAILY
     Route: 065
  3. METHYLPREDNISOLONE [Concomitant]
     Active Substance: METHYLPREDNISOLONE
     Indication: Renal transplant
     Dosage: 500 MILLIGRAM, DAILY
     Route: 065
  4. Immunoglobulin [Concomitant]
     Indication: Renal transplant
     Dosage: 20 GRAM, DAILY
     Route: 042
  5. Immunoglobulin [Concomitant]
     Indication: Haemophagocytic lymphohistiocytosis
     Dosage: 20 GRAM, DAILY
     Route: 042
  6. CYCLOSPORINE [Concomitant]
     Active Substance: CYCLOSPORINE
     Indication: Renal transplant
     Dosage: 75 MILLIGRAM, DAILY
     Route: 065
  7. PREDNISOLONE [Concomitant]
     Active Substance: PREDNISOLONE
     Indication: Renal transplant
     Dosage: 30 MILLIGRAM, DAILY
     Route: 065
  8. AMPHOTERICIN B [Concomitant]
     Active Substance: AMPHOTERICIN B
     Indication: Fungal infection
     Dosage: 3 MILLIGRAM/KILOGRAM; LIPOSOMAL
     Route: 065

REACTIONS (1)
  - Haemophagocytic lymphohistiocytosis [Fatal]
